FAERS Safety Report 9022291 (Version 2)
Quarter: 2013Q1

REPORT INFORMATION
  Report Type: Spontaneous
  Country: BR (occurrence: BR)
  Receive Date: 20130118
  Receipt Date: 20130123
  Transmission Date: 20140127
  Serious: Yes (Other)
  Sender: FDA-Public Use
  Company Number: PHHY2013BR004138

PATIENT
  Sex: Female
  Weight: 92 kg

DRUGS (6)
  1. FORASEQ [Suspect]
     Indication: ASTHMA
     Dosage: 1 DF, BID
     Dates: start: 2003
  2. CARDIZEM [Concomitant]
     Indication: HYPERTENSION
     Dosage: 1 DF, QD
     Route: 048
  3. SYNTHROID [Concomitant]
     Indication: HYPOTHYROIDISM
     Dosage: 1 DF, QD
     Route: 048
  4. GALVUS MET [Concomitant]
     Indication: TYPE 2 DIABETES MELLITUS
     Dosage: 1 DF, QD
     Route: 048
  5. ATORVASTATIN [Concomitant]
     Dosage: 1 DF, QD
     Route: 048
  6. CLOPIDOGREL [Concomitant]
     Indication: ARTERIAL DISORDER
     Dosage: 1 DF, QD
     Route: 048

REACTIONS (7)
  - Infarction [Recovered/Resolved]
  - Breast cancer [Recovered/Resolved]
  - Neoplasm malignant [Recovered/Resolved]
  - Fall [Recovered/Resolved]
  - Depressed mood [Not Recovered/Not Resolved]
  - Arthralgia [Not Recovered/Not Resolved]
  - Asthma [Recovering/Resolving]
